FAERS Safety Report 16619449 (Version 1)
Quarter: 2019Q3

REPORT INFORMATION
  Report Type: Other
  Country: CA (occurrence: CA)
  Receive Date: 20190723
  Receipt Date: 20190723
  Transmission Date: 20191004
  Serious: Yes (Other)
  Sender: FDA-Public Use
  Company Number: CA-PFIZER INC-2019311007

PATIENT
  Age: 29 Year
  Sex: Female

DRUGS (6)
  1. CEFAZOLIN [Suspect]
     Active Substance: CEFAZOLIN
     Indication: JOINT SWELLING
  2. AMPICILLINE [AMPICILLIN] [Suspect]
     Active Substance: AMPICILLIN
     Indication: JOINT SWELLING
  3. CEFTRIAXONE SODIUM. [Suspect]
     Active Substance: CEFTRIAXONE SODIUM
     Indication: ARTHRALGIA
     Dosage: UNK
  4. AMPICILLINE [AMPICILLIN] [Suspect]
     Active Substance: AMPICILLIN
     Indication: ARTHRALGIA
     Dosage: UNK
  5. CEFTRIAXONE SODIUM. [Suspect]
     Active Substance: CEFTRIAXONE SODIUM
     Indication: JOINT SWELLING
  6. CEFAZOLIN [Suspect]
     Active Substance: CEFAZOLIN
     Indication: ARTHRALGIA
     Dosage: UNK

REACTIONS (7)
  - Mycoplasma infection [Unknown]
  - Hepatic necrosis [Unknown]
  - Herpes simplex hepatitis [Unknown]
  - Peritoneal cloudy effluent [Unknown]
  - Hepatomegaly [Unknown]
  - Maternal exposure during pregnancy [Unknown]
  - Sepsis [Unknown]
